FAERS Safety Report 17007247 (Version 2)
Quarter: 2019Q4

REPORT INFORMATION
  Report Type: Report from Study
  Country: None (occurrence: US)
  Receive Date: 20191108
  Receipt Date: 20191115
  Transmission Date: 20200122
  Serious: Yes (Hospitalization, Other)
  Sender: FDA-Public Use
  Company Number: US-ABBVIE-19K-163-2993447-00

PATIENT
  Sex: Female
  Weight: 97.61 kg

DRUGS (4)
  1. COLESEVELAM [Concomitant]
     Active Substance: COLESEVELAM
     Indication: BOWEL MOVEMENT IRREGULARITY
  2. HUMIRA [Suspect]
     Active Substance: ADALIMUMAB
     Indication: CROHN^S DISEASE
     Route: 058
     Dates: start: 201308
  3. IBUPROFEN. [Concomitant]
     Active Substance: IBUPROFEN
     Indication: PRODUCT USED FOR UNKNOWN INDICATION
  4. TYLENOL [Concomitant]
     Active Substance: ACETAMINOPHEN
     Indication: PRODUCT USED FOR UNKNOWN INDICATION

REACTIONS (4)
  - Thyroid hormones increased [Not Recovered/Not Resolved]
  - Nausea [Recovered/Resolved]
  - Haemorrhage [Recovered/Resolved]
  - Abdominal pain [Recovered/Resolved]
